FAERS Safety Report 7989028-2 (Version None)
Quarter: 2011Q4

REPORT INFORMATION
  Report Type: 
  Country: None (occurrence: None)
  Receive Date: 20111219
  Receipt Date: 20111211
  Transmission Date: 20120403
  Serious: Yes (Life-Threatening, Hospitalization, Other)
  Sender: FDA-Public Use
  Company Number: US-BAYER-2011-036932

PATIENT
  Age: 21 Year
  Sex: Female
  Weight: 83.9 kg

DRUGS (3)
  1. YAZ [Suspect]
     Indication: ACNE
     Dosage: UNK
     Dates: start: 20080820, end: 20091129
  2. PROVENTIL [Concomitant]
     Indication: ACNE
     Dosage: UNK UNK, PRN
     Dates: start: 20090409, end: 20090429
  3. NSAID'S [Concomitant]
     Dosage: UNK UNK, PRN
     Dates: start: 20010101, end: 20110101

REACTIONS (3)
  - DEEP VEIN THROMBOSIS [None]
  - PULMONARY EMBOLISM [None]
  - PROCEDURAL COMPLICATION [None]
